FAERS Safety Report 25982128 (Version 2)
Quarter: 2025Q4

REPORT INFORMATION
  Report Type: Spontaneous
  Country: US (occurrence: US)
  Receive Date: 20251031
  Receipt Date: 20251111
  Transmission Date: 20260118
  Serious: No
  Sender: BAUSCH AND LOMB
  Company Number: US-BAUSCH-BH-2025-018624

PATIENT
  Age: 66 Year
  Sex: Male
  Weight: 62.6 kg

DRUGS (1)
  1. RELISTOR [Suspect]
     Active Substance: METHYLNALTREXONE BROMIDE
     Indication: Constipation
     Dosage: 12 MG / 0.6 ML
     Route: 065
     Dates: start: 20251003

REACTIONS (6)
  - Therapeutic product effect decreased [Unknown]
  - Needle issue [Unknown]
  - Intentional product use issue [Unknown]
  - Product quality issue [Unknown]
  - Device failure [Unknown]
  - Product availability issue [Unknown]

NARRATIVE: CASE EVENT DATE: 20250101
